FAERS Safety Report 24323433 (Version 1)
Quarter: 2024Q3

REPORT INFORMATION
  Report Type: Spontaneous
  Country: US (occurrence: None)
  Receive Date: 20240916
  Receipt Date: 20240916
  Transmission Date: 20241017
  Serious: Yes (Hospitalization)
  Sender: Public
  Company Number: None

PATIENT
  Sex: Female

DRUGS (3)
  1. OPSUMIT [Suspect]
     Active Substance: MACITENTAN
     Indication: Pulmonary arterial hypertension
     Dosage: FREQUENCY : DAILY;?
     Route: 048
     Dates: start: 202408
  2. UPTRAVI [Concomitant]
     Active Substance: SELEXIPAG
  3. TADALAFIL [Concomitant]
     Active Substance: TADALAFIL

REACTIONS (11)
  - Headache [None]
  - Dizziness [None]
  - Jaw disorder [None]
  - Muscle discomfort [None]
  - Musculoskeletal discomfort [None]
  - Nausea [None]
  - Diarrhoea [None]
  - Hypervolaemia [None]
  - Dyspnoea at rest [None]
  - Oedema [None]
  - Wheezing [None]
